FAERS Safety Report 16804095 (Version 1)
Quarter: 2019Q3

REPORT INFORMATION
  Report Type: Report from Study
  Country: US (occurrence: US)
  Receive Date: 20190913
  Receipt Date: 20190913
  Transmission Date: 20191005
  Serious: Yes (Other)
  Sender: FDA-Public Use
  Company Number: US-ASTELLAS-2019US036237

PATIENT
  Sex: Male

DRUGS (1)
  1. ENZALUTAMIDE [Suspect]
     Active Substance: ENZALUTAMIDE
     Indication: PROSTATE CANCER
     Route: 048
     Dates: start: 20190820

REACTIONS (5)
  - Depression [Unknown]
  - Feminisation acquired [Unknown]
  - Feeling of despair [Unknown]
  - Testicular atrophy [Unknown]
  - Gynaecomastia [Unknown]
